FAERS Safety Report 11297141 (Version 1)
Quarter: 2015Q3

REPORT INFORMATION
  Report Type: Spontaneous
  Country: US (occurrence: US)
  Receive Date: 20150722
  Receipt Date: 20150722
  Transmission Date: 20151125
  Serious: Yes (Other)
  Sender: FDA-Public Use
  Company Number: US-ELI_LILLY_AND_COMPANY-US201001000538

PATIENT
  Sex: Female

DRUGS (2)
  1. FORTEO [Concomitant]
     Active Substance: TERIPARATIDE
     Dosage: UNK, UNKNOWN
     Route: 065
  2. EVISTA [Suspect]
     Active Substance: RALOXIFENE HYDROCHLORIDE
     Indication: OSTEOPOROSIS
     Dosage: UNK, DAILY (1/D)
     Route: 065

REACTIONS (4)
  - Hypersensitivity [Unknown]
  - Syncope [Unknown]
  - Drug ineffective [Unknown]
  - Malaise [Unknown]
